FAERS Safety Report 18665000 (Version 1)
Quarter: 2020Q4

REPORT INFORMATION
  Report Type: Spontaneous
  Country: DE (occurrence: DE)
  Receive Date: 20201225
  Receipt Date: 20201225
  Transmission Date: 20210114
  Serious: Yes (Hospitalization)
  Sender: FDA-Public Use
  Company Number: DE-TEVA-2020-DE-1860794

PATIENT
  Age: 87 Year
  Sex: Female

DRUGS (17)
  1. APIXABAN [Concomitant]
     Active Substance: APIXABAN
     Dosage: 5 MILLIGRAM DAILY; 1-0-1-0
  2. TORASEMID [Concomitant]
     Active Substance: TORSEMIDE
     Dosage: 10 MILLIGRAM DAILY;  1-0-0-0
  3. SPIRONOLACTONE. [Concomitant]
     Active Substance: SPIRONOLACTONE
     Dosage: 50 MILLIGRAM DAILY; 1-0-0-0
  4. METAMIZOL [Concomitant]
     Active Substance: METAMIZOLE SODIUM
     Dosage: 30-30-30-30, DROPS
  5. MACROGOL [Concomitant]
     Active Substance: POLYETHYLENE GLYCOLS
     Dosage: 10 GRAM DAILY;  1-0-0-0
  6. CALCIMED D3 500 MG/1000 I.E. [Concomitant]
     Dosage: 1 DOSAGE FORMS DAILY; 500 | 1000 MG / IIE, 1-0-0-0,
  7. MIRABEGRON [Suspect]
     Active Substance: MIRABEGRON
     Dosage: 50 MILLIGRAM DAILY;  1-0-0-0
  8. ALLOPURINOL. [Concomitant]
     Active Substance: ALLOPURINOL
     Dosage: .5 DOSAGE FORMS DAILY; 300 MG, 0.5-0-0-0,
  9. LAXOBERAL [Concomitant]
     Active Substance: SODIUM PICOSULFATE
     Dosage: NEED, DROPS
  10. FENOTEROL/IPRATROPIUMBROMID [Concomitant]
     Dosage: 0.5 | 0.25 MG / ML, 20-20-20-0
     Route: 055
  11. CITALOPRAM [Suspect]
     Active Substance: CITALOPRAM HYDROBROMIDE
     Dosage: .5 DOSAGE FORMS DAILY; 20 MG, 0.5-0-0-0
  12. CARBAMAZEPINE. [Suspect]
     Active Substance: CARBAMAZEPINE
     Dosage: 400 MILLIGRAM DAILY; 1-0-1-0
  13. FENTANYL. [Suspect]
     Active Substance: FENTANYL
     Dosage: 0.025 UG / H, CHANGE EVERY 3 DAYS
     Route: 062
  14. LACTULOSE. [Concomitant]
     Active Substance: LACTULOSE
     Dosage: 20 ML DAILY;  1-0-1-0, SYRUP
  15. VIANI 50 UG/250 UG DISKUS [Concomitant]
     Dosage: 2 DOSAGE FORMS DAILY; 250|50 UG, 1-0-1-0
  16. PANTOPRAZOL [Concomitant]
     Active Substance: PANTOPRAZOLE SODIUM
     Dosage: 40 MILLIGRAM DAILY;  1-0-0-0
  17. ALENDRONSAURE [Concomitant]
     Active Substance: ALENDRONIC ACID
     Dosage: 70 MG / WEEK, SATURDAYS,

REACTIONS (6)
  - Product prescribing error [Unknown]
  - Nausea [Unknown]
  - Arthralgia [Unknown]
  - Fall [Unknown]
  - Fracture [Unknown]
  - Product administration error [Unknown]
